FAERS Safety Report 5181156-2 (Version None)
Quarter: 2006Q4

REPORT INFORMATION
  Report Type: 
  Country: None (occurrence: None)
  Receive Date: 20061220
  Receipt Date: 20061213
  Transmission Date: 20070319
  Serious: Yes (Hospitalization)
  Sender: FDA-Public Use
  Company Number: FR-BRISTOL-MYERS SQUIBB COMPANY-13613310

PATIENT
  Age: 82 Year
  Sex: Female

DRUGS (5)
  1. COUMADIN [Suspect]
     Indication: PHLEBITIS
     Route: 048
  2. NICARDIPINE HYDROCHLORIDE [Concomitant]
  3. PERINDOPRIL ERBUMINE [Concomitant]
  4. ANAFRANIL [Concomitant]
     Indication: DYSTHYMIC DISORDER
  5. RISPERDAL [Concomitant]
     Indication: BIPOLAR I DISORDER

REACTIONS (3)
  - FALL [None]
  - HAEMATOMA [None]
  - OVERDOSE [None]
